FAERS Safety Report 4613150-1 (Version None)
Quarter: 2005Q1

REPORT INFORMATION
  Report Type: 
  Country: None (occurrence: None)
  Receive Date: 20050316
  Receipt Date: 20050225
  Transmission Date: 20050727
  Serious: Yes (Other)
  Sender: FDA-Public Use
  Company Number: US_0502112063

PATIENT
  Age: 66 Year
  Sex: Female
  Weight: 91 kg

DRUGS (8)
  1. FORTEO [Suspect]
     Indication: OSTEOPOROSIS
     Dosage: 20 UG DAY
     Dates: start: 20030201, end: 20041220
  2. CARBAMAZEPINE [Concomitant]
  3. GABAPENTIN [Concomitant]
  4. VALSARTAN [Concomitant]
  5. SIMVASTATIN RATIOPHARM (SIMVASTATIN RATIOPHARM) [Concomitant]
  6. CALCIUM CARBONATE [Concomitant]
  7. VITAMIN D [Concomitant]
  8. MULTI-VITAMIN [Concomitant]

REACTIONS (5)
  - CEREBRAL INFARCTION [None]
  - CONVULSION [None]
  - DIZZINESS [None]
  - NAUSEA [None]
  - VISUAL FIELD DEFECT [None]
